FAERS Safety Report 18857134 (Version 1)
Quarter: 2021Q1

REPORT INFORMATION
  Report Type: Spontaneous
  Country: JP (occurrence: JP)
  Receive Date: 20210208
  Receipt Date: 20210208
  Transmission Date: 20210420
  Serious: Yes (Disabling)
  Sender: FDA-Public Use
  Company Number: JP-ABBVIE-21K-087-3762786-00

PATIENT
  Age: 71 Year
  Sex: Female
  Weight: 48.5 kg

DRUGS (2)
  1. POPSCAINE [Suspect]
     Active Substance: LEVOBUPIVACAINE HYDROCHLORIDE
     Indication: SURGERY
     Dosage: 1.6 ML PER HOUR
     Route: 008
     Dates: start: 20200410, end: 20200410
  2. POPSCAINE [Suspect]
     Active Substance: LEVOBUPIVACAINE HYDROCHLORIDE
     Indication: POSTOPERATIVE ANALGESIA
     Dosage: 1.6 ML PER HOUR
     Route: 008
     Dates: start: 20200410, end: 20200412

REACTIONS (2)
  - Muscular weakness [Recovered/Resolved with Sequelae]
  - Paraesthesia [Recovered/Resolved with Sequelae]

NARRATIVE: CASE EVENT DATE: 20200411
